FAERS Safety Report 7916321-1 (Version None)
Quarter: 2011Q4

REPORT INFORMATION
  Report Type: 
  Country: None (occurrence: None)
  Receive Date: 20111116
  Receipt Date: 20111109
  Transmission Date: 20120403
  Serious: No
  Sender: FDA-Public Use
  Company Number: US-BIOGENIDEC-2011BI042763

PATIENT
  Age: 41 Year
  Sex: Female

DRUGS (1)
  1. TYSABRI [Suspect]
     Indication: MULTIPLE SCLEROSIS
     Route: 042
     Dates: start: 20070314

REACTIONS (6)
  - GAIT DISTURBANCE [None]
  - NASOPHARYNGITIS [None]
  - EYE PAIN [None]
  - SENSATION OF HEAVINESS [None]
  - FATIGUE [None]
  - CYSTITIS [None]
